FAERS Safety Report 7562248-7 (Version None)
Quarter: 2011Q2

REPORT INFORMATION
  Report Type: 
  Country: None (occurrence: None)
  Receive Date: 20110620
  Receipt Date: 20110620
  Transmission Date: 20111010
  Serious: Yes (Other)
  Sender: FDA-Public Use
  Company Number: None

PATIENT
  Age: 46 Year
  Sex: Female
  Weight: 81.6475 kg

DRUGS (1)
  1. VICTOZA [Suspect]
     Indication: DIABETES MELLITUS
     Dosage: ONE WEEK AT LOW DOSE THEN MED 3XDAY INTRAMEDULLAR
     Route: 028
     Dates: start: 20091101, end: 20100326

REACTIONS (4)
  - ERUCTATION [None]
  - IMPAIRED GASTRIC EMPTYING [None]
  - FLATULENCE [None]
  - DYSGEUSIA [None]
